FAERS Safety Report 8905893 (Version 1)
Quarter: 2012Q4

REPORT INFORMATION
  Report Type: 
  Country: US (occurrence: US)
  Receive Date: 20121112
  Receipt Date: 20121112
  Transmission Date: 20130627
  Serious: No
  Sender: FDA-Public Use
  Company Number: US-PFIZER INC-2012280626

PATIENT
  Age: 41 Year
  Sex: Male
  Weight: 81.6 kg

DRUGS (2)
  1. ADVIL COLD AND SINUS [Suspect]
     Indication: COLD
     Dosage: UNK, once a day
     Route: 048
     Dates: start: 20121108
  2. ADVIL COLD AND SINUS [Suspect]
     Indication: SINUSITIS

REACTIONS (1)
  - Mydriasis [Unknown]
